FAERS Safety Report 6266694-3 (Version None)
Quarter: 2009Q3

REPORT INFORMATION
  Report Type: 
  Country: None (occurrence: None)
  Receive Date: 20090714
  Receipt Date: 20070926
  Transmission Date: 20100115
  Serious: Yes (Other)
  Sender: FDA-Public Use
  Company Number: US-ASTRAZENECA-2006UW21291

PATIENT
  Age: 46 Year
  Sex: Female
  Weight: 132.9 kg

DRUGS (30)
  1. SEROQUEL [Suspect]
     Indication: SLEEP DISORDER
     Route: 048
     Dates: start: 20040501
  2. SEROQUEL [Suspect]
     Indication: BIPOLAR DISORDER
     Route: 048
     Dates: start: 20040501
  3. SEROQUEL [Suspect]
     Indication: DEPRESSION
     Route: 048
     Dates: start: 20040501
  4. SEROQUEL [Suspect]
     Route: 048
     Dates: start: 20040501
  5. SEROQUEL [Suspect]
     Route: 048
     Dates: start: 20040501
  6. SEROQUEL [Suspect]
     Route: 048
     Dates: start: 20040501
  7. PENICILLIN VK [Concomitant]
     Route: 065
  8. METFORMIN HCL [Concomitant]
     Route: 048
  9. ZONEGRAN [Concomitant]
     Dosage: 50 MG ONE IN THE MORNING TWO IN THE P.M
     Route: 065
  10. HYDROCHLOROTHIAZIDE [Concomitant]
     Route: 065
  11. BIAXIN [Concomitant]
     Route: 065
  12. LIPITOR [Concomitant]
     Route: 048
  13. NEXIUM [Concomitant]
     Route: 065
  14. TRICOR [Concomitant]
     Route: 048
  15. HYDROCODONE BITARTRATE [Concomitant]
     Dosage: 5 MG/500 MG TABS, 7.5 MG/500 MG DISPENSED
     Route: 065
  16. METHOCARBAMOL [Concomitant]
     Route: 065
  17. EFFEXOR [Concomitant]
     Dosage: 27.5 MG, 75 MG DISPENSED
     Route: 065
  18. MERIDIA [Concomitant]
     Dosage: 5 MG DISPENSED
     Route: 065
  19. GLYBURIDE [Concomitant]
     Dosage: 5 MG DISPENSED 10 MG BID
     Route: 065
  20. LYRICA [Concomitant]
     Dosage: 50 MG DISPENSED
     Route: 065
  21. BUPIVACAINE HCL [Concomitant]
     Dosage: 0.25 - .0005 DISPENSED
     Route: 065
  22. FENTANYL CITRATE [Concomitant]
     Dosage: 0.05 MG/ML DISPENSED
     Route: 065
  23. GLYCOPYRROLATE [Concomitant]
     Dosage: 0.2 MG/ML DISPENSED
     Route: 065
  24. MEPERIDINE HCL [Concomitant]
     Dosage: 50 MG/ML, 100 MG/ML SYRINGE DISPENSED
     Route: 065
  25. MORPHINE SULFATE [Concomitant]
     Dosage: 2 MG/ML, 3.4 MG/ML, 10 MG/ML SYRINGE DISPENSED
     Route: 065
  26. PROPOFOL [Concomitant]
     Dosage: 10 MG/ML AMP IV DISPENSED
     Route: 065
  27. ROCURONIUM BROMIDE [Concomitant]
     Dosage: 10 MG / ML VL 10 M DISPENSED
     Route: 065
  28. DOCUSATE SODIUM [Concomitant]
     Route: 048
  29. ISOFLURANE [Concomitant]
     Route: 065
  30. TEMAZEPAM [Concomitant]
     Indication: SLEEP DISORDER
     Dosage: 30 MG HS, PRN
     Route: 048

REACTIONS (3)
  - DIABETES MELLITUS [None]
  - DIABETIC NEUROPATHY [None]
  - TYPE 2 DIABETES MELLITUS [None]
